FAERS Safety Report 5892528-2 (Version None)
Quarter: 2008Q3

REPORT INFORMATION
  Report Type: 
  Country: None (occurrence: None)
  Receive Date: 20080923
  Receipt Date: 20080917
  Transmission Date: 20090109
  Serious: Yes (Hospitalization)
  Sender: FDA-Public Use
  Company Number: US-CELGENEUS-163-21880-08090999

PATIENT
  Sex: Male

DRUGS (2)
  1. REVLIMID [Suspect]
     Indication: MULTIPLE MYELOMA
     Route: 048
     Dates: start: 20080818
  2. INFUSION [Concomitant]
     Indication: INFECTION
     Route: 051
     Dates: start: 20080101

REACTIONS (3)
  - INFECTION [None]
  - PARALYSIS [None]
  - SWELLING [None]
